FAERS Safety Report 4759467-1 (Version None)
Quarter: 2005Q3

REPORT INFORMATION
  Report Type: 
  Country: None (occurrence: None)
  Receive Date: 20050831
  Receipt Date: 20040629
  Transmission Date: 20060218
  Serious: No
  Sender: FDA-Public Use
  Company Number: 200653

PATIENT
  Sex: Female

DRUGS (1)
  1. AVONEX [Suspect]
     Indication: MULTIPLE SCLEROSIS
     Dosage: 30 UG; QW; IM
     Route: 030
     Dates: start: 20040601, end: 20050401

REACTIONS (5)
  - FATIGUE [None]
  - HEADACHE [None]
  - IRRITABILITY [None]
  - PAIN IN EXTREMITY [None]
  - WEIGHT INCREASED [None]
